FAERS Safety Report 12649201 (Version 4)
Quarter: 2017Q1

REPORT INFORMATION
  Report Type: Report from Study
  Country: None (occurrence: CA)
  Receive Date: 20160812
  Receipt Date: 20170209
  Transmission Date: 20170428
  Serious: Yes (Hospitalization, Other)
  Sender: FDA-Public Use
  Company Number: CA-ABBVIE-16K-028-1642859-00

PATIENT
  Sex: Female

DRUGS (2)
  1. HUMIRA [Suspect]
     Active Substance: ADALIMUMAB
     Indication: PSORIASIS
     Route: 058
     Dates: start: 20131001, end: 201601
  2. HUMIRA [Suspect]
     Active Substance: ADALIMUMAB
     Route: 058
     Dates: start: 20160709, end: 2016

REACTIONS (4)
  - Hepatic cirrhosis [Not Recovered/Not Resolved]
  - Psoriasis [Recovering/Resolving]
  - Ascites [Not Recovered/Not Resolved]
  - Alcohol use [Unknown]

NARRATIVE: CASE EVENT DATE: 2016
